FAERS Safety Report 8132323-7 (Version None)
Quarter: 2012Q1

REPORT INFORMATION
  Report Type: 
  Country: None (occurrence: None)
  Receive Date: 20120213
  Receipt Date: 20120206
  Transmission Date: 20120608
  Serious: Yes (Hospitalization, Other)
  Sender: FDA-Public Use
  Company Number: US-BAYER-2011-065381

PATIENT
  Age: 22 Year
  Sex: Female
  Weight: 57 kg

DRUGS (3)
  1. REGLAN [Concomitant]
     Indication: NAUSEA
     Dosage: 10 MG, QD
     Dates: start: 20090501
  2. YAZ [Suspect]
     Indication: PREMENSTRUAL SYNDROME
     Dosage: UNK
     Dates: start: 20071001, end: 20090701
  3. PROMETHAZINE [Concomitant]
     Indication: NAUSEA
     Dosage: 15 MG, QD
     Dates: start: 20070101, end: 20090101

REACTIONS (7)
  - EMOTIONAL DISTRESS [None]
  - FEAR [None]
  - CHOLECYSTITIS CHRONIC [None]
  - PAIN [None]
  - LIVER DISORDER [None]
  - CHOLELITHIASIS [None]
  - ANXIETY [None]
